FAERS Safety Report 25587626 (Version 4)
Quarter: 2025Q3

REPORT INFORMATION
  Report Type: Spontaneous
  Country: GB (occurrence: GB)
  Receive Date: 20250721
  Receipt Date: 20250904
  Transmission Date: 20251020
  Serious: Yes (Disabling, Other)
  Sender: GE HEALTHCARE
  Company Number: GB-GE HEALTHCARE-2025CSU009489

PATIENT
  Age: 43 Year
  Sex: Male

DRUGS (1)
  1. OMNIPAQUE [Suspect]
     Active Substance: IOHEXOL
     Indication: Computerised tomogram thorax
     Route: 042
     Dates: start: 20250309, end: 20250309

REACTIONS (16)
  - Brain fog [Recovered/Resolved]
  - Cognitive disorder [Recovered/Resolved]
  - Disturbance in attention [Recovered/Resolved]
  - Vitreous floaters [Unknown]
  - Dry eye [Recovered/Resolved]
  - Tinnitus [Recovered/Resolved]
  - Skin burning sensation [Unknown]
  - Muscle spasms [Recovered/Resolved]
  - Blindness [Recovered/Resolved]
  - Vision blurred [Recovered/Resolved]
  - Amnesia [Recovered/Resolved]
  - Eye pain [Unknown]
  - Headache [Recovered/Resolved]
  - Head discomfort [Recovering/Resolving]
  - Erythema [Recovering/Resolving]
  - Flushing [Unknown]

NARRATIVE: CASE EVENT DATE: 20250315
